FAERS Safety Report 11255423 (Version 1)
Quarter: 2015Q3

REPORT INFORMATION
  Report Type: Spontaneous
  Country: US (occurrence: US)
  Receive Date: 20150709
  Receipt Date: 20150709
  Transmission Date: 20151125
  Serious: No
  Sender: FDA-Public Use
  Company Number: US-SA-2015SA056383

PATIENT
  Age: 76 Year
  Sex: Male
  Weight: 67.1 kg

DRUGS (1)
  1. AFREZZA [Suspect]
     Active Substance: INSULIN HUMAN
     Indication: DIABETES MELLITUS
     Dosage: FREQUENCY 3X WITH MEALS DOSE:4 UNIT(S)
     Route: 055
     Dates: start: 20150309, end: 20150415

REACTIONS (1)
  - Chest discomfort [Unknown]
